FAERS Safety Report 9364169 (Version 3)
Quarter: 2013Q3

REPORT INFORMATION
  Report Type: Report from Study
  Country: CA (occurrence: CA)
  Receive Date: 20130624
  Receipt Date: 20130710
  Transmission Date: 20140515
  Serious: Yes (Hospitalization, Other)
  Sender: FDA-Public Use
  Company Number: CA-ABBOTT-13P-028-1106074-00

PATIENT
  Age: 38 Year
  Sex: Female
  Weight: 75.82 kg

DRUGS (3)
  1. HUMIRA [Suspect]
     Indication: CROHN^S DISEASE
     Route: 058
     Dates: start: 20130605
  2. IMURAN [Concomitant]
     Indication: CROHN^S DISEASE
     Route: 048
  3. METHADONE [Concomitant]
     Indication: CROHN^S DISEASE
     Route: 048

REACTIONS (13)
  - Intestinal obstruction [Not Recovered/Not Resolved]
  - Fallopian tube cyst [Unknown]
  - Abdominal pain lower [Recovered/Resolved]
  - Axillary mass [Recovered/Resolved]
  - Localised oedema [Recovered/Resolved]
  - Localised infection [Recovered/Resolved]
  - Breast swelling [Recovered/Resolved]
  - Mastitis [Recovered/Resolved]
  - Skin ulcer [Not Recovered/Not Resolved]
  - Impaired healing [Not Recovered/Not Resolved]
  - Cyst [Recovered/Resolved]
  - Lymphadenopathy [Recovered/Resolved]
  - Infected skin ulcer [Not Recovered/Not Resolved]
